FAERS Safety Report 12614890 (Version 1)
Quarter: 2016Q3

REPORT INFORMATION
  Report Type: Spontaneous
  Country: RO (occurrence: RO)
  Receive Date: 20160802
  Receipt Date: 20160802
  Transmission Date: 20161109
  Serious: Yes (Life-Threatening, Other)
  Sender: FDA-Public Use
  Company Number: RO-TEVA-681204ISR

PATIENT
  Age: 62 Year
  Sex: Female

DRUGS (1)
  1. TEVAGRASTIM [Suspect]
     Active Substance: FILGRASTIM
     Indication: ORAL CANDIDIASIS
     Dosage: 1/2 VIAL OF 30MG TEVAGRASTIM
     Route: 048

REACTIONS (5)
  - Dyspnoea [Recovered/Resolved]
  - Product use issue [Unknown]
  - Erythema [Recovered/Resolved]
  - Dysphagia [Recovered/Resolved]
  - Generalised oedema [Recovered/Resolved]
